FAERS Safety Report 8250576-1 (Version None)
Quarter: 2012Q2

REPORT INFORMATION
  Report Type: 
  Country: None (occurrence: None)
  Receive Date: 20120402
  Receipt Date: 20120402
  Transmission Date: 20120825
  Serious: No
  Sender: FDA-Public Use
  Company Number: None

PATIENT
  Sex: Female
  Weight: 80.739 kg

DRUGS (1)
  1. SENSITIVE JELLY KY [Suspect]
     Indication: VULVOVAGINAL DRYNESS
     Route: 067
     Dates: start: 20120313, end: 20120313

REACTIONS (1)
  - FUNGAL INFECTION [None]
